FAERS Safety Report 5454116-1 (Version None)
Quarter: 2007Q3

REPORT INFORMATION
  Report Type: 
  Country: None (occurrence: None)
  Receive Date: 20070917
  Receipt Date: 20070228
  Transmission Date: 20080115
  Serious: No
  Sender: FDA-Public Use
  Company Number: US-ASTRAZENECA-2006UW08317

PATIENT
  Sex: Female
  Weight: 122.7 kg

DRUGS (4)
  1. SEROQUEL [Suspect]
     Indication: DEPRESSION
     Dosage: APPROX. 100 MG TO 300 MG
     Route: 048
  2. SEROQUEL [Suspect]
     Indication: ANXIETY
     Dosage: APPROX. 100 MG TO 300 MG
     Route: 048
  3. ZYPREXA [Suspect]
  4. RISPERDAL [Suspect]
     Dosage: APPROX. 2 MG

REACTIONS (2)
  - DIABETES MELLITUS [None]
  - PAIN IN EXTREMITY [None]
